FAERS Safety Report 22062093 (Version 2)
Quarter: 2023Q1

REPORT INFORMATION
  Report Type: Spontaneous
  Country: US (occurrence: US)
  Receive Date: 20230304
  Receipt Date: 20230321
  Transmission Date: 20230417
  Serious: Yes (Other)
  Sender: FDA-Public Use
  Company Number: US-JNJFOC-20221248448

PATIENT
  Age: 28 Year
  Sex: Female

DRUGS (11)
  1. ELMIRON [Suspect]
     Active Substance: PENTOSAN POLYSULFATE SODIUM
     Indication: Cystitis interstitial
     Route: 048
     Dates: start: 20051001, end: 20151001
  2. LEVOTHYROXINE [Concomitant]
     Active Substance: LEVOTHYROXINE
     Indication: Thyroid hormone replacement therapy
     Dates: start: 20090803
  3. XANAX [Concomitant]
     Active Substance: ALPRAZOLAM
     Indication: Anxiety
     Dates: start: 20090803, end: 20140827
  4. TIZANIDINE [Concomitant]
     Active Substance: TIZANIDINE
     Indication: Muscle relaxant therapy
     Dates: start: 20091207, end: 20151112
  5. ESTRADIOL [Concomitant]
     Active Substance: ESTRADIOL
     Indication: Hormone replacement therapy
     Dates: start: 20101210, end: 20141113
  6. HYDROCHLOROTHIAZIDE [Concomitant]
     Active Substance: HYDROCHLOROTHIAZIDE
     Indication: Hypertension
     Dates: start: 20120712, end: 20141113
  7. LITHIUM [Concomitant]
     Active Substance: LITHIUM
     Indication: Drug therapy
     Dates: start: 20120712, end: 20140914
  8. ESOMEPRAZOLE MAGNESIUM [Concomitant]
     Active Substance: ESOMEPRAZOLE MAGNESIUM
     Indication: Gastrooesophageal reflux disease
     Dates: start: 20130225, end: 20140224
  9. DIAZEPAM [Concomitant]
     Active Substance: DIAZEPAM
     Indication: Anxiety
     Dates: start: 20131122, end: 20140106
  10. TRAMADOL [Concomitant]
     Active Substance: TRAMADOL
     Indication: Pain
     Dates: start: 20140527, end: 20150113
  11. TIZANIDINE [Concomitant]
     Active Substance: TIZANIDINE
     Indication: Muscle relaxant therapy
     Dates: start: 20140422, end: 20151201

REACTIONS (3)
  - Macular degeneration [Unknown]
  - Retinal pigmentation [Unknown]
  - Off label use [Unknown]

NARRATIVE: CASE EVENT DATE: 20051001
